FAERS Safety Report 7608302-2 (Version None)
Quarter: 2011Q3

REPORT INFORMATION
  Report Type: 
  Country: None (occurrence: None)
  Receive Date: 20110712
  Receipt Date: 20100722
  Transmission Date: 20111222
  Serious: Yes (Hospitalization, Other)
  Sender: FDA-Public Use
  Company Number: 2010070051

PATIENT
  Age: 51 Year
  Sex: Male

DRUGS (10)
  1. METOPROLOL TARTRATE [Concomitant]
  2. ASPIRIN [Concomitant]
  3. AMLODIPINE [Concomitant]
  4. ATORVASTATIN [Concomitant]
  5. HYDROXYZINE [Concomitant]
  6. CARISOPRODOL [Suspect]
     Indication: BACK PAIN
     Dosage: (8400 MG PER DAY),ORAL
     Route: 048
  7. COBALAMIN (COBALAMIN) [Concomitant]
  8. HYDROCODONE/APAP (HYDROCODONE, ACETAMINOPHEN) [Concomitant]
  9. LISINOPRIL [Concomitant]
  10. ALPRAZOLAM [Concomitant]

REACTIONS (3)
  - INTENTIONAL DRUG MISUSE [None]
  - TOXICITY TO VARIOUS AGENTS [None]
  - DRUG WITHDRAWAL SYNDROME [None]
